FAERS Safety Report 6222955-5 (Version None)
Quarter: 2009Q2

REPORT INFORMATION
  Report Type: 
  Country: None (occurrence: None)
  Receive Date: 20090609
  Receipt Date: 20090528
  Transmission Date: 20091009
  Serious: Yes (Other)
  Sender: FDA-Public Use
  Company Number: 2009AP002183

PATIENT
  Sex: Female

DRUGS (7)
  1. ALENDRONATE SODIUM [Suspect]
     Indication: OSTEOPOROSIS
     Dosage: 70 MG, QW, PO
     Route: 048
     Dates: start: 20071201, end: 20081101
  2. ARNICA EXTRACT (ARNICA EXTRACT) [Concomitant]
  3. CALCIUM (CALCIUM) [Concomitant]
  4. MULTIVITAMIN [Concomitant]
  5. OMEGA-3 TRIGLYCERIDES (OMEGA-3 TRIGLYCERIDES) [Concomitant]
  6. ERGOCALCIFEROL [Concomitant]
  7. ZINC (ZINC) [Concomitant]

REACTIONS (6)
  - ALTERED VISUAL DEPTH PERCEPTION [None]
  - EYE PAIN [None]
  - HEADACHE [None]
  - NIGHT BLINDNESS [None]
  - PHOTOPHOBIA [None]
  - VISION BLURRED [None]
